FAERS Safety Report 5700256-9 (Version None)
Quarter: 2008Q2

REPORT INFORMATION
  Report Type: 
  Country: None (occurrence: None)
  Receive Date: 20080408
  Receipt Date: 20080408
  Transmission Date: 20081010
  Serious: Yes (Other)
  Sender: FDA-Public Use
  Company Number: None

PATIENT
  Age: 75 Year
  Sex: Male
  Weight: 124.2856 kg

DRUGS (1)
  1. STARLIX [Suspect]
     Indication: DIABETES MELLITUS
     Dosage: ONE  3 TIMES A DAY  PO  (DURATION: ABOUT A YEAR)
     Route: 048

REACTIONS (2)
  - PRURITUS GENERALISED [None]
  - URTICARIA [None]
